FAERS Safety Report 9551904 (Version 1)
Quarter: 2013Q2

REPORT INFORMATION
  Report Type: Spontaneous
  Country: US (occurrence: None)
  Receive Date: 20130627
  Receipt Date: 20130627
  Transmission Date: 20140414
  Serious: No
  Sender: FDA-Public Use
  Company Number: 1000045561

PATIENT
  Age: 72 Year
  Sex: Female

DRUGS (5)
  1. LINZESS [Suspect]
     Indication: IRRITABLE BOWEL SYNDROME
     Route: 048
     Dates: start: 201305
  2. CRESTOR (ROSUVASTATIN CALCIUM)(ROSUVASTATIN CALCIUM) [Concomitant]
  3. WELLBUTRIN (BUPROPION HYDROCHLORIDE) (BUPROPION HYDROCHLORIDE) [Concomitant]
  4. ESTRADIOL (ESTRADIOL)(ESTRADIOL) [Concomitant]
  5. PRILOSEC (OMEPRAZOLE) (OMEPRAZOLE) [Concomitant]

REACTIONS (2)
  - Drug ineffective [None]
  - Constipation [None]
